FAERS Safety Report 26209491 (Version 1)
Quarter: 2025Q4

REPORT INFORMATION
  Report Type: Spontaneous
  Country: JP (occurrence: JP)
  Receive Date: 20251229
  Receipt Date: 20251229
  Transmission Date: 20260118
  Serious: Yes (Hospitalization)
  Sender: INSUD PHARMA
  Company Number: JP-INSUD PHARMA-2512JP10737

PATIENT

DRUGS (2)
  1. PROGESTERONE [Suspect]
     Active Substance: PROGESTERONE
     Indication: Turner^s syndrome
     Dosage: UNKNOWN
     Route: 065
  2. ESTROGENS [Suspect]
     Active Substance: ESTROGENS
     Indication: Turner^s syndrome
     Dosage: UNKNOWN
     Route: 065

REACTIONS (3)
  - Lung opacity [Not Recovered/Not Resolved]
  - Pulmonary mass [Not Recovered/Not Resolved]
  - Uterine polyp [Unknown]
